FAERS Safety Report 5093465-6 (Version None)
Quarter: 2006Q3

REPORT INFORMATION
  Report Type: 
  Country: None (occurrence: None)
  Receive Date: 20060828
  Receipt Date: 20060816
  Transmission Date: 20061208
  Serious: Yes (Death, Other)
  Sender: FDA-Public Use
  Company Number: 2006-BP-09667RO

PATIENT
  Age: 70 Year
  Sex: Female

DRUGS (1)
  1. TAMOXIFEN CITRATE [Suspect]
     Indication: METASTASES TO THORAX
     Dosage: PO
     Route: 048

REACTIONS (5)
  - ENDOMETRIAL CANCER [None]
  - LIPOSARCOMA [None]
  - NEOPLASM PROGRESSION [None]
  - RECTAL CANCER [None]
  - VAGINAL CANCER [None]
